FAERS Safety Report 18634939 (Version 1)
Quarter: 2020Q4

REPORT INFORMATION
  Report Type: Spontaneous
  Country: FR (occurrence: FR)
  Receive Date: 20201218
  Receipt Date: 20201218
  Transmission Date: 20210114
  Serious: Yes (Hospitalization, Other)
  Sender: FDA-Public Use
  Company Number: FR-009507513-2012FRA006931

PATIENT
  Age: 68 Year
  Sex: Male

DRUGS (3)
  1. DACLATASVIR. [Suspect]
     Active Substance: DACLATASVIR
     Dosage: UNK
     Dates: start: 20141105, end: 20150421
  2. RIBAVIRIN. [Suspect]
     Active Substance: RIBAVIRIN
     Dosage: UNK
     Route: 048
     Dates: start: 20141105, end: 20150421
  3. SOFOSBUVIR [Suspect]
     Active Substance: SOFOSBUVIR
     Dosage: UNK
     Dates: start: 20141105, end: 20150421

REACTIONS (1)
  - Cardiac failure [Unknown]

NARRATIVE: CASE EVENT DATE: 201806
